FAERS Safety Report 8189220-0 (Version None)
Quarter: 2012Q1

REPORT INFORMATION
  Report Type: 
  Country: None (occurrence: None)
  Receive Date: 20120306
  Receipt Date: 20120306
  Transmission Date: 20120608
  Serious: Yes (Death, Hospitalization)
  Sender: FDA-Public Use
  Company Number: None

PATIENT
  Sex: Male
  Weight: 70.6 kg

DRUGS (1)
  1. TAXOL [Suspect]
     Dosage: 465 MG
     Dates: end: 20110707

REACTIONS (7)
  - MUSCULOSKELETAL PAIN [None]
  - CONDITION AGGRAVATED [None]
  - HYPOPHAGIA [None]
  - ASTHENIA [None]
  - FALL [None]
  - CONSTIPATION [None]
  - NEUTROPHIL COUNT DECREASED [None]
